FAERS Safety Report 9213904 (Version 2)
Quarter: 2013Q4

REPORT INFORMATION
  Report Type: Spontaneous
  Country: US (occurrence: US)
  Receive Date: 20130405
  Receipt Date: 20131111
  Transmission Date: 20140711
  Serious: Yes (Hospitalization, Other)
  Sender: FDA-Public Use
  Company Number: US-BAYER-2013-040371

PATIENT
  Age: 34 Year
  Sex: Female

DRUGS (23)
  1. YAZ [Suspect]
     Dosage: UNK
     Dates: start: 2008, end: 2011
  2. YASMIN [Suspect]
     Dosage: UNK
     Dates: start: 2008, end: 2011
  3. OCELLA [Suspect]
  4. ROBAXIN [Concomitant]
     Indication: PAIN
     Dosage: 500 MG, EVERY 6 HOURS
     Route: 048
     Dates: start: 20110209
  5. BENTYL [Concomitant]
     Indication: PAIN
     Dosage: 20 MG, EVERY 6 HOURS
     Route: 048
     Dates: start: 20110218
  6. HYDROCODONE W/APAP [Concomitant]
     Dosage: 5-500 MG
     Route: 048
     Dates: start: 20110218
  7. KETOROLAC [Concomitant]
     Dosage: 10 MG, UNK
     Route: 048
     Dates: start: 20110218
  8. RANITIDINE [Concomitant]
     Dosage: 150 MG, UNK
     Route: 048
  9. ACETAMINOPHEN [Concomitant]
     Dosage: 325 MG, UNK
     Route: 048
  10. FLUCONAZOLE [Concomitant]
     Dosage: 150 MG, UNK
     Route: 048
  11. PHENAZOPYRIDINE [Concomitant]
     Dosage: 100 MG, UNK
     Route: 048
  12. CIPROFLOXACIN [Concomitant]
     Dosage: 500 MG, UNK
     Route: 048
  13. MACROBID [Concomitant]
     Dosage: 100 MG, UNK
     Route: 048
  14. CO-TRIMOXAZOLE [Concomitant]
     Dosage: 160-800 MG
     Route: 048
  15. PROSCAR [Concomitant]
     Dosage: 5 MG, TAKE ONE TABLET EVERY DAY
     Route: 048
     Dates: start: 20110325
  16. METFORMIN [Concomitant]
     Dosage: 1500 MG, EVERY EVENING)
     Route: 048
  17. SINGULAIR [Concomitant]
     Dosage: 10 MG, UNK
     Route: 048
  18. BUPROPION [Concomitant]
     Dosage: 150 MG, UNK
     Route: 048
  19. NEXIUM [Concomitant]
     Dosage: 40 MG, UNK
     Route: 048
  20. OXYBUTYNIN [Concomitant]
     Dosage: 15 MG, UNK
     Route: 048
  21. SUMATRIPTAN SUCCINATE [Concomitant]
     Indication: HEADACHE
     Dosage: 50 MG, UNK
     Route: 048
  22. MOMETASONE FUROATE [Concomitant]
     Dosage: 50 MCG SPRAY
  23. FEXOFENADINE [Concomitant]
     Dosage: 180 MG, UNK

REACTIONS (10)
  - Cholelithiasis [None]
  - Cholecystitis [None]
  - Biliary dyskinesia [None]
  - Abdominal pain [None]
  - Injury [None]
  - Pain [None]
  - Emotional distress [None]
  - Anxiety [None]
  - General physical health deterioration [None]
  - Pain [None]
